FAERS Safety Report 13744415 (Version 2)
Quarter: 2017Q3

REPORT INFORMATION
  Report Type: Spontaneous
  Country: IN (occurrence: IN)
  Receive Date: 20170712
  Receipt Date: 20170724
  Transmission Date: 20171127
  Serious: Yes (Other)
  Sender: FDA-Public Use
  Company Number: IN-CONCORDIA PHARMACEUTICALS INC.-GSH201707-004066

PATIENT
  Age: 34 Year
  Sex: Female

DRUGS (7)
  1. METHOTREXATE. [Suspect]
     Active Substance: METHOTREXATE
  2. PYRAZINAMIDE. [Concomitant]
     Active Substance: PYRAZINAMIDE
  3. PREDNISOLONE. [Suspect]
     Active Substance: PREDNISOLONE
  4. ISONIAZID. [Concomitant]
     Active Substance: ISONIAZID
  5. PIPERACILLIN TAZOBACTUM [Concomitant]
  6. ETHAMBUTOL [Concomitant]
     Active Substance: ETHAMBUTOL HYDROCHLORIDE
  7. RIFAMPICIN [Concomitant]
     Active Substance: RIFAMPIN

REACTIONS (3)
  - Disseminated tuberculosis [Recovering/Resolving]
  - Splenic lesion [Recovering/Resolving]
  - Portal vein thrombosis [Recovering/Resolving]
